FAERS Safety Report 6627870-0 (Version None)
Quarter: 2010Q1

REPORT INFORMATION
  Report Type: 
  Country: None (occurrence: None)
  Receive Date: 20100311
  Receipt Date: 20090227
  Transmission Date: 20100710
  Serious: No
  Sender: FDA-Public Use
  Company Number: A0765880A

PATIENT
  Age: 63 Year
  Sex: Female

DRUGS (4)
  1. NICORETTE [Suspect]
  2. NICODERM CQ [Suspect]
  3. NICODERM CQ [Suspect]
  4. NICOTINE POLACRILEX [Suspect]

REACTIONS (3)
  - DRUG ADMINISTRATION ERROR [None]
  - DRUG INEFFECTIVE [None]
  - INTENTIONAL DRUG MISUSE [None]
